FAERS Safety Report 9441250 (Version 1)
Quarter: 2013Q3

REPORT INFORMATION
  Report Type: Spontaneous
  Country: US (occurrence: US)
  Receive Date: 20130805
  Receipt Date: 20130805
  Transmission Date: 20140515
  Serious: Yes (Other)
  Sender: FDA-Public Use
  Company Number: US-PFIZER INC-2013226556

PATIENT
  Age: 42 Year
  Sex: Male
  Weight: 136 kg

DRUGS (5)
  1. CELEBREX [Suspect]
     Indication: NECK PAIN
     Dosage: 200 MG, 1X/DAY
     Dates: start: 20130618, end: 20130725
  2. CELEBREX [Suspect]
     Indication: MUSCULOSKELETAL PAIN
  3. CRESTOR [Concomitant]
     Dosage: 20 MG, 1X/DAY
  4. LEXAPRO [Concomitant]
     Indication: CONVULSION
     Dosage: 20 MG, 1X/DAY
  5. METFORMIN [Concomitant]
     Indication: DIABETES MELLITUS
     Dosage: 850 MG, 2X/DAY

REACTIONS (1)
  - Rotator cuff syndrome [Unknown]
